FAERS Safety Report 4683028-6 (Version None)
Quarter: 2005Q2

REPORT INFORMATION
  Report Type: 
  Country: None (occurrence: None)
  Receive Date: 20050606
  Receipt Date: 20050112
  Transmission Date: 20051028
  Serious: Yes (Hospitalization)
  Sender: FDA-Public Use
  Company Number: US-MERCK-0501USA01195

PATIENT
  Age: 67 Year
  Sex: Male
  Weight: 102 kg

DRUGS (21)
  1. VIOXX [Suspect]
     Indication: SPONDYLITIS
     Route: 048
     Dates: start: 19991001, end: 20031001
  2. CLARITIN [Concomitant]
     Route: 065
     Dates: start: 20000201
  3. METOPROLOL [Concomitant]
     Route: 065
  4. RELAFEN [Concomitant]
     Route: 065
  5. NITROGLYCERIN [Concomitant]
     Route: 065
  6. IMDUR [Concomitant]
     Route: 065
  7. DIPYRIDAMOLE [Concomitant]
     Route: 065
  8. XANAX [Concomitant]
     Route: 065
  9. CARTIA XT [Concomitant]
     Route: 065
  10. CARTIA XT [Concomitant]
     Route: 065
     Dates: start: 20030101
  11. PAXIL [Concomitant]
     Indication: FATIGUE
     Route: 065
  12. LIPITOR [Concomitant]
     Route: 065
  13. TYLENOL W/ CODEINE NO. 3 [Concomitant]
     Route: 065
  14. DYAZIDE [Concomitant]
     Route: 065
  15. ASPIRIN [Concomitant]
     Route: 065
  16. CARDIZEM CD [Concomitant]
     Route: 065
  17. PLAVIX [Concomitant]
     Route: 065
  18. LANOXIN [Concomitant]
     Route: 065
  19. LASIX [Concomitant]
     Route: 065
  20. HYDROCODONE BITARTRATE + ACETAMINOPHEN [Concomitant]
     Route: 065
  21. POTASSIUM CHLORIDE [Concomitant]
     Route: 065

REACTIONS (22)
  - ANEURYSM [None]
  - AORTIC ATHEROSCLEROSIS [None]
  - ASTHENIA [None]
  - CARDIAC DISORDER [None]
  - CARDIAC MURMUR [None]
  - CHEST PAIN [None]
  - CORONARY ARTERY OCCLUSION [None]
  - DIZZINESS [None]
  - DYSPEPSIA [None]
  - EMOTIONAL DISTRESS [None]
  - HERNIA [None]
  - INTERVERTEBRAL DISC PROTRUSION [None]
  - MITRAL VALVE SCLEROSIS [None]
  - MYOCARDIAL INFARCTION [None]
  - PERIPHERAL ARTERY ANEURYSM [None]
  - PLANTAR FASCIITIS [None]
  - RADICULOPATHY [None]
  - RENAL CYST [None]
  - RHEUMATOID ARTHRITIS [None]
  - SKIN CANCER [None]
  - SKIN LESION [None]
  - VENTRICULAR HYPERTROPHY [None]
